FAERS Safety Report 6070827-1 (Version None)
Quarter: 2009Q1

REPORT INFORMATION
  Report Type: 
  Country: None (occurrence: None)
  Receive Date: 20090209
  Receipt Date: 20081114
  Transmission Date: 20090719
  Serious: No
  Sender: FDA-Public Use
  Company Number: A0741802A

PATIENT
  Age: 55 Year
  Sex: Female

DRUGS (9)
  1. PAROXETINE HCL [Suspect]
     Dosage: 20MG PER DAY
     Route: 048
     Dates: start: 20060101
  2. PAXIL [Suspect]
     Dosage: 20MG PER DAY
     Route: 048
     Dates: start: 20020101, end: 20060101
  3. CYMBALTA [Suspect]
     Indication: FIBROMYALGIA
     Dosage: 50MG PER DAY
     Route: 048
     Dates: start: 20081101, end: 20081109
  4. PAROXETINE HCL [Suspect]
  5. LOVASTATIN [Concomitant]
  6. ATENOLOL [Concomitant]
  7. TRICOR [Concomitant]
  8. ZETIA [Concomitant]
  9. GABAPENTIN [Concomitant]

REACTIONS (7)
  - ADVERSE DRUG REACTION [None]
  - DISSOCIATION [None]
  - ELECTRIC SHOCK [None]
  - FATIGUE [None]
  - FEELING JITTERY [None]
  - VISUAL IMPAIRMENT [None]
  - YAWNING [None]
